FAERS Safety Report 25645556 (Version 1)
Quarter: 2025Q3

REPORT INFORMATION
  Report Type: Spontaneous
  Country: US (occurrence: None)
  Receive Date: 20250804
  Receipt Date: 20250804
  Transmission Date: 20251020
  Serious: Yes (Life-Threatening, Hospitalization)
  Sender: FDA-CTU
  Company Number: None

PATIENT
  Age: 34 Year
  Sex: Male
  Weight: 89.5 kg

DRUGS (6)
  1. HERBALS\MITRAGYNINE [Suspect]
     Active Substance: HERBALS\MITRAGYNINE
  2. LORAZEPAM [Suspect]
     Active Substance: LORAZEPAM
  3. BUSPIRONE [Concomitant]
     Active Substance: BUSPIRONE HYDROCHLORIDE
  4. LISINOPRIL [Concomitant]
     Active Substance: LISINOPRIL
  5. ALCOHOL [Concomitant]
     Active Substance: ALCOHOL
  6. COCAINE [Suspect]
     Active Substance: COCAINE

REACTIONS (2)
  - Substance abuse [None]
  - Seizure [None]

NARRATIVE: CASE EVENT DATE: 20250803
